FAERS Safety Report 6257864-9 (Version None)
Quarter: 2009Q3

REPORT INFORMATION
  Report Type: 
  Country: None (occurrence: None)
  Receive Date: 20090707
  Receipt Date: 20070512
  Transmission Date: 20100115
  Serious: Yes (Other)
  Sender: FDA-Public Use
  Company Number: US-ASTRAZENECA-2006UW11053

PATIENT
  Age: 33 Year
  Sex: Male
  Weight: 97.5 kg

DRUGS (19)
  1. SEROQUEL [Suspect]
     Dosage: 25 MG-200 MG
     Route: 048
     Dates: start: 20010605
  2. SEROQUEL [Suspect]
     Route: 048
  3. PERPHENAZINE [Concomitant]
     Dosage: 4 MG DISPENSED
     Dates: start: 20050502
  4. SINGULAIR [Concomitant]
     Dosage: 0.25 MG-0.5 MG
     Route: 048
     Dates: start: 19990803
  5. GLUCOPHAGE [Concomitant]
     Dates: start: 20030428
  6. PRILOSEC [Concomitant]
     Dosage: 10 MG-20 MG
     Dates: start: 20010605
  7. HYDROCHLOROTHIAZIDE [Concomitant]
     Dates: start: 19990706
  8. TOPAMAX [Concomitant]
     Dosage: 25 MG-100 MG
     Dates: start: 20010605
  9. LOTENSIN [Concomitant]
     Dates: start: 20021119
  10. CLONAZEPAM [Concomitant]
     Dates: start: 20030104
  11. ZOCOR [Concomitant]
     Indication: HYPERLIPIDAEMIA
     Dates: start: 20030428
  12. LIPITOR [Concomitant]
     Dates: start: 20020107
  13. CLARINEX [Concomitant]
     Dates: start: 20020408
  14. ADVAIR HFA [Concomitant]
     Dosage: 250/50 MG-500/50 MG
     Dates: start: 20010907
  15. METHYLPREDNISOLONE [Concomitant]
     Dosage: 4 MG DISPENSED
     Dates: start: 20011008
  16. RANITIDINE [Concomitant]
     Dates: start: 19990607
  17. ALLEGRA D 24 HOUR [Concomitant]
     Dates: start: 20000607
  18. NEXIUM [Concomitant]
     Dates: start: 20020408
  19. SOLU-MEDROL [Concomitant]
     Route: 030
     Dates: start: 20010907

REACTIONS (5)
  - DIABETES MELLITUS [None]
  - DIABETIC NEUROPATHY [None]
  - HYPERGLYCAEMIA [None]
  - HYPERLIPIDAEMIA [None]
  - TYPE 2 DIABETES MELLITUS [None]
